FAERS Safety Report 4695969-4 (Version None)
Quarter: 2005Q2

REPORT INFORMATION
  Report Type: 
  Country: None (occurrence: None)
  Receive Date: 20050621
  Receipt Date: 20050613
  Transmission Date: 20051028
  Serious: Yes (Other)
  Sender: FDA-Public Use
  Company Number: PHBS2005JP08611

PATIENT
  Age: 83 Year
  Sex: Female

DRUGS (9)
  1. DIOVAN [Suspect]
     Route: 048
     Dates: start: 20050127
  2. MAINTATE [Concomitant]
     Dosage: 1 DF, TID
     Dates: start: 20050127
  3. ASPIRIN [Concomitant]
     Dosage: 100 MG, UNK
     Dates: start: 20050127
  4. PLETAL [Concomitant]
     Dosage: 200 MG, UNK
     Route: 048
     Dates: start: 20050127
  5. SIGMART [Concomitant]
     Dosage: 15 MG, UNK
     Route: 048
     Dates: start: 20050127
  6. MUCOSTA [Concomitant]
     Dosage: 300 MG, UNK
     Route: 048
     Dates: start: 20050127
  7. LIPITOR [Concomitant]
     Dosage: 10 MG, UNK
     Route: 048
     Dates: start: 20050127
  8. ATELEC [Concomitant]
     Dosage: 10 MG, UNK
     Route: 048
     Dates: start: 20050127
  9. FRANDOL [Concomitant]
     Dosage: 1 DF, UNK
     Dates: start: 20050127

REACTIONS (1)
  - PULMONARY FIBROSIS [None]
